FAERS Safety Report 4364733-8 (Version None)
Quarter: 2004Q2

REPORT INFORMATION
  Report Type: 
  Country: None (occurrence: None)
  Receive Date: 20040525
  Receipt Date: 20040525
  Transmission Date: 20050107
  Serious: Yes (Other)
  Sender: FDA-Public Use
  Company Number: None

PATIENT
  Age: 32 Year
  Sex: Male
  Weight: 102.0593 kg

DRUGS (1)
  1. LAMISIL [Suspect]
     Indication: ONYCHOMYCOSIS
     Dosage: 250 MG Q/DAY ORAL
     Route: 048
     Dates: start: 20040321, end: 20040515

REACTIONS (2)
  - AGEUSIA [None]
  - DYSGEUSIA [None]
